FAERS Safety Report 5149231-6 (Version None)
Quarter: 2006Q4

REPORT INFORMATION
  Report Type: 
  Country: None (occurrence: None)
  Receive Date: 20061113
  Receipt Date: 20050919
  Transmission Date: 20070319
  Serious: No
  Sender: FDA-Public Use
  Company Number: 418258

PATIENT
  Age: 74 Year
  Sex: Male

DRUGS (10)
  1. COREG [Suspect]
     Indication: HYPERTENSION
     Dosage: 3.125MG TWICE PER DAY
     Route: 048
     Dates: start: 20050801
  2. SYNTHROID [Concomitant]
  3. PERSANTINE [Concomitant]
  4. COZAAR [Concomitant]
  5. LASIX [Concomitant]
  6. ZOCOR [Concomitant]
  7. ALLEGRA-D 12 HOUR [Concomitant]
  8. NEXIUM [Concomitant]
  9. ACTOS [Concomitant]
  10. TRICOR [Concomitant]

REACTIONS (1)
  - CONSTIPATION [None]
